FAERS Safety Report 12443116 (Version 1)
Quarter: 2016Q2

REPORT INFORMATION
  Report Type: Spontaneous
  Country: US (occurrence: US)
  Receive Date: 20160607
  Receipt Date: 20160607
  Transmission Date: 20160815
  Serious: No
  Sender: FDA-Public Use
  Company Number: US-CELGENEUS-USA-2016060630

PATIENT
  Sex: Female

DRUGS (1)
  1. OTEZLA [Suspect]
     Active Substance: APREMILAST
     Indication: FUNGAL SKIN INFECTION
     Dosage: 60 MILLIGRAM
     Route: 048
     Dates: start: 20160108, end: 201606

REACTIONS (1)
  - Drug ineffective [Recovered/Resolved]
